FAERS Safety Report 4692581-8 (Version None)
Quarter: 2005Q2

REPORT INFORMATION
  Report Type: 
  Country: None (occurrence: None)
  Receive Date: 20050617
  Receipt Date: 20050601
  Transmission Date: 20051028
  Serious: Yes (Other)
  Sender: FDA-Public Use
  Company Number: CA-AMGEN-US136651

PATIENT
  Age: 4 Year

DRUGS (1)
  1. KINERET [Suspect]
     Indication: JUVENILE ARTHRITIS

REACTIONS (1)
  - GAIT DISTURBANCE [None]
